FAERS Safety Report 5306725-8 (Version None)
Quarter: 2007Q1

REPORT INFORMATION
  Report Type: 
  Country: None (occurrence: None)
  Receive Date: 20070201
  Receipt Date: 20061203
  Transmission Date: 20070707
  Serious: No
  Sender: FDA-Public Use
  Company Number: 2006PV026247

PATIENT
  Age: 61 Year
  Sex: Female
  Weight: 58.0604 kg

DRUGS (18)
  1. BYETTA [Suspect]
     Indication: DIABETES MELLITUS
     Dosage: SEE IMAGE
     Dates: start: 20060701, end: 20060801
  2. BYETTA [Suspect]
     Indication: DIABETES MELLITUS
     Dosage: SEE IMAGE
     Dates: start: 20060801, end: 20061101
  3. BYETTA [Suspect]
     Indication: DIABETES MELLITUS
     Dosage: SEE IMAGE
     Dates: start: 20061101
  4. LANTUS [Concomitant]
  5. HYDROCODONE W/ [Concomitant]
  6. ACETAMINOPHEN [Concomitant]
  7. ZANAFLEX [Concomitant]
  8. POTASSIUM ACETATE [Concomitant]
  9. CRESTOR [Concomitant]
  10. WELLBUTRIN [Concomitant]
  11. ALDACTONE [Concomitant]
  12. NEXIUM [Concomitant]
  13. ATENOLOL [Concomitant]
  14. LEXAPRO [Concomitant]
  15. COZAAR [Concomitant]
  16. SEROQUEL [Concomitant]
  17. AMARYL [Concomitant]
  18. METFORMIN HCL [Concomitant]

REACTIONS (3)
  - BLOOD GLUCOSE ABNORMAL [None]
  - BLOOD GLUCOSE INCREASED [None]
  - COLD SWEAT [None]
